FAERS Safety Report 8137438-5 (Version None)
Quarter: 2012Q1

REPORT INFORMATION
  Report Type: 
  Country: None (occurrence: None)
  Receive Date: 20120215
  Receipt Date: 20120206
  Transmission Date: 20120608
  Serious: Yes (Hospitalization)
  Sender: FDA-Public Use
  Company Number: NO-US-EMD SERONO, INC.-E2B_7111152

PATIENT
  Sex: Female

DRUGS (5)
  1. EFFEXOR [Concomitant]
     Indication: ANXIETY
     Dosage: 75 + 150 MG
  2. CLOMIPHENE CITRATE [Suspect]
     Indication: INFERTILITY
     Dates: start: 20110701, end: 20110701
  3. NOZINAN [Concomitant]
     Indication: ANXIETY
  4. TRISEQUENS [Concomitant]
     Indication: HORMONE THERAPY
  5. CALCIGRAN FORTE [Concomitant]
     Indication: OSTEOPOROSIS

REACTIONS (5)
  - RASH GENERALISED [None]
  - RASH MACULO-PAPULAR [None]
  - ORAL PAIN [None]
  - DERMATITIS ALLERGIC [None]
  - PRURITUS GENERALISED [None]
